FAERS Safety Report 4957452-8 (Version None)
Quarter: 2006Q1

REPORT INFORMATION
  Report Type: 
  Country: None (occurrence: None)
  Receive Date: 20060327
  Receipt Date: 20060310
  Transmission Date: 20060701
  Serious: Yes (Other)
  Sender: FDA-Public Use
  Company Number: 222823

PATIENT
  Age: 60 Year
  Sex: Male

DRUGS (1)
  1. RAPTIVA [Suspect]
     Indication: PSORIASIS
     Dosage: 0.71
     Dates: start: 20060126

REACTIONS (5)
  - ARTHRALGIA [None]
  - ONCOCYTOMA [None]
  - PAIN IN EXTREMITY [None]
  - TUMOUR FLARE [None]
  - WHITE BLOOD CELL COUNT INCREASED [None]
